FAERS Safety Report 8327864-3 (Version None)
Quarter: 2012Q2

REPORT INFORMATION
  Report Type: 
  Country: None (occurrence: None)
  Receive Date: 20120502
  Receipt Date: 20120423
  Transmission Date: 20120825
  Serious: Yes (Hospitalization)
  Sender: FDA-Public Use
  Company Number: US-BAYER-2011-067543

PATIENT
  Age: 19 Year
  Sex: Female
  Weight: 81.633 kg

DRUGS (6)
  1. CYMBALTA [Concomitant]
     Indication: DEPRESSION
  2. ACIPHEX [Concomitant]
  3. YAZ [Suspect]
     Indication: PREMENSTRUAL SYNDROME
  4. YAZ [Suspect]
     Indication: CONTRACEPTION
     Dosage: UNK
     Dates: start: 20090101
  5. CYMBALTA [Concomitant]
     Indication: ANXIETY
     Dosage: UNK
     Dates: start: 20090101
  6. YAZ [Suspect]

REACTIONS (8)
  - EMOTIONAL DISTRESS [None]
  - GENERAL PHYSICAL HEALTH DETERIORATION [None]
  - ANXIETY [None]
  - CHOLECYSTITIS [None]
  - DEPRESSION [None]
  - GALLBLADDER DISORDER [None]
  - PAIN [None]
  - DYSPEPSIA [None]
